FAERS Safety Report 8565222 (Version 2)
Quarter: 2013Q1

REPORT INFORMATION
  Report Type: Spontaneous
  Country: US (occurrence: US)
  Receive Date: 20120516
  Receipt Date: 20130208
  Transmission Date: 20140127
  Serious: Yes (Hospitalization)
  Sender: FDA-Public Use
  Company Number: US-BAYER-2012-046683

PATIENT
  Age: 32 Year
  Sex: Female
  Weight: 61.22 kg

DRUGS (2)
  1. YAZ [Suspect]
     Indication: MENSTRUAL CYCLE MANAGEMENT
     Dosage: UNK
     Dates: start: 200701, end: 20080616
  2. LEVOTHYROXINE [Concomitant]
     Dosage: 75 UG, QD

REACTIONS (18)
  - Cerebral artery thrombosis [None]
  - Pain [None]
  - Injury [None]
  - General physical health deterioration [None]
  - General physical health deterioration [None]
  - Emotional distress [None]
  - Anxiety [None]
  - Dysarthria [None]
  - Hemiparesis [None]
  - Deep vein thrombosis [None]
  - Peroneal nerve palsy [None]
  - Gait disturbance [None]
  - Disorientation [None]
  - Mental retardation [None]
  - Aphasia [None]
  - Memory impairment [None]
  - Disturbance in attention [None]
  - Off label use [None]
